FAERS Safety Report 9175592 (Version 1)
Quarter: 2012Q4

REPORT INFORMATION
  Report Type: 
  Country: FR (occurrence: FR)
  Receive Date: 20120913
  Receipt Date: 20120913
  Transmission Date: 20130627
  Serious: Yes (Other)
  Sender: FDA-Public Use
  Company Number: FR-009507513-1209FRA004522

PATIENT

DRUGS (5)
  1. SINEMET 100 MG / 10 MG COMPRIME SECABLE [Suspect]
  2. FLUOXETINE [Suspect]
  3. RISPERIDONE [Interacting]
  4. MEPROBAMATE [Interacting]
  5. PIRIBEDIL [Interacting]

REACTIONS (2)
  - Confusional state [Unknown]
  - Drug interaction [Unknown]
